FAERS Safety Report 7920388-4 (Version None)
Quarter: 2011Q4

REPORT INFORMATION
  Report Type: 
  Country: None (occurrence: None)
  Receive Date: 20111117
  Receipt Date: 20111110
  Transmission Date: 20120403
  Serious: Yes (Hospitalization, Other)
  Sender: FDA-Public Use
  Company Number: US-NOVOPROD-339391

PATIENT

DRUGS (2)
  1. NOVOLOG [Suspect]
     Indication: TYPE 1 DIABETES MELLITUS
     Dosage: UNKNOWN
     Route: 058
     Dates: start: 20010101
  2. LANTUS [Concomitant]
     Indication: TYPE 1 DIABETES MELLITUS
     Route: 058

REACTIONS (6)
  - BLOOD POTASSIUM INCREASED [None]
  - TUNNEL VISION [None]
  - DELUSION [None]
  - KETOACIDOSIS [None]
  - DRUG DOSE OMISSION [None]
  - BLOOD SODIUM INCREASED [None]
